FAERS Safety Report 10562786 (Version 1)
Quarter: 2014Q4

REPORT INFORMATION
  Report Type: Spontaneous
  Country: US (occurrence: None)
  Receive Date: 20141103
  Receipt Date: 20141103
  Transmission Date: 20150529
  Serious: No
  Sender: FDA-Public Use
  Company Number: None

PATIENT
  Age: 48 Year
  Sex: Male

DRUGS (1)
  1. COPAXONE [Suspect]
     Active Substance: GLATIRAMER ACETATE
     Indication: MULTIPLE SCLEROSIS
     Dosage: 40 MG?TIW?SQ?THERAPY ?FROM 05/27/2014 TO CURRENTLY ON HOLD AFTER LAST SHOT ON 0/24/2014
     Dates: start: 20140527

REACTIONS (3)
  - Chest pain [None]
  - Arthralgia [None]
  - Flushing [None]

NARRATIVE: CASE EVENT DATE: 20141024
